FAERS Safety Report 17867229 (Version 2)
Quarter: 2020Q2

REPORT INFORMATION
  Report Type: Spontaneous
  Country: JP (occurrence: JP)
  Receive Date: 20200605
  Receipt Date: 20200615
  Transmission Date: 20200714
  Serious: Yes (Other)
  Sender: FDA-Public Use
  Company Number: JP-009507513-2006JPN001992

PATIENT
  Age: 44 Year
  Sex: Female

DRUGS (19)
  1. RISPERDAL [Concomitant]
     Active Substance: RISPERIDONE
     Dosage: UNKNOWN
  2. SILECE [Concomitant]
     Active Substance: FLUNITRAZEPAM
     Dosage: UNKNOWN
  3. LOXONIN [Concomitant]
     Active Substance: LOXOPROFEN SODIUM
     Dosage: TAPE (INCLUDING POULTICE), UNKNOWN
  4. DEPAKENE [Concomitant]
     Active Substance: VALPROIC ACID
     Dosage: UNKNOWN, REPORTED AS DEPAKENE-R
  5. GLACTIV [Suspect]
     Active Substance: SITAGLIPTIN
     Indication: TYPE 2 DIABETES MELLITUS
     Dosage: 50 MG
     Route: 048
  6. KENEI G [Concomitant]
     Active Substance: GLYCERIN
     Dosage: UNKNOWN, REPORTED AS KENEI
  7. FORXIGA [Suspect]
     Active Substance: DAPAGLIFLOZIN
     Indication: TYPE 2 DIABETES MELLITUS
     Dosage: 5 MG
     Route: 048
     Dates: start: 20140809, end: 20200601
  8. TAKECAB [Concomitant]
     Active Substance: VONOPRAZAN FUMARATE
     Dosage: UNKNOWN
  9. AKINETON [Concomitant]
     Active Substance: BIPERIDEN HYDROCHLORIDE
     Dosage: UNKNOWN
  10. DEPAS [Concomitant]
     Dosage: UNKNOWN
  11. HIBERNA [Concomitant]
     Active Substance: PROMETHAZINE HYDROCHLORIDE
     Dosage: UNKNOWN
  12. SERENACE [Concomitant]
     Active Substance: HALOPERIDOL
     Dosage: UNKNOWN
  13. HANGE-SHASHIN-TO [Concomitant]
     Active Substance: HERBALS
     Dosage: UNKNOWN
  14. HIRNAMIN (LEVOMEPROMAZINE HYDROCHLORIDE) [Concomitant]
     Dosage: UNKNOWN
  15. PHENOBAL [Concomitant]
     Active Substance: PHENOBARBITAL
     Dosage: UNKNOWN, EXCEPT (DAYS POST OVULATION (DPO))
  16. BUSCOPAN [Concomitant]
     Active Substance: BUTYLSCOPOLAMINE BROMIDE
     Dosage: UNKNOWN
  17. TOVIAZ [Concomitant]
     Active Substance: FESOTERODINE FUMARATE
     Dosage: UNKNOWN
  18. COLONEL [Concomitant]
     Active Substance: CALCIUM POLYCARBOPHIL
     Dosage: UNKNOWN
  19. LOPEMIN [Concomitant]
     Dosage: UNKNOWN

REACTIONS (1)
  - Cholecystitis [Unknown]

NARRATIVE: CASE EVENT DATE: 20200601
